FAERS Safety Report 4996396-2 (Version None)
Quarter: 2006Q2

REPORT INFORMATION
  Report Type: 
  Country: None (occurrence: None)
  Receive Date: 20060509
  Receipt Date: 20060501
  Transmission Date: 20061013
  Serious: Yes (Other)
  Sender: FDA-Public Use
  Company Number: US-KINGPHARMUSA00001-K200600548

PATIENT
  Sex: Male

DRUGS (2)
  1. ALTACE [Suspect]
     Dosage: 5 MG, QD
     Route: 048
  2. BENDROFLUAZIDE [Concomitant]
     Dosage: 2.5 MG, UNK
     Route: 048

REACTIONS (2)
  - ALCOHOL INTERACTION [None]
  - ORTHOSTATIC HYPOTENSION [None]
